FAERS Safety Report 19417667 (Version 1)
Quarter: 2021Q2

REPORT INFORMATION
  Report Type: Spontaneous
  Country: US (occurrence: US)
  Receive Date: 20210615
  Receipt Date: 20210615
  Transmission Date: 20210717
  Serious: Yes (Hospitalization)
  Sender: FDA-Public Use
  Company Number: None

PATIENT
  Age: 22 Year
  Sex: Female
  Weight: 120.6 kg

DRUGS (7)
  1. CYTARABINE. [Concomitant]
     Active Substance: CYTARABINE
  2. METHOTREXATE. [Concomitant]
     Active Substance: METHOTREXATE
  3. DOXORUBICIN HYDROCHLORIDE. [Concomitant]
     Active Substance: DOXORUBICIN HYDROCHLORIDE
  4. VINCRISTINE SULFATE. [Concomitant]
     Active Substance: VINCRISTINE SULFATE
  5. CYCLOPHOSPHAMIDE. [Suspect]
     Active Substance: CYCLOPHOSPHAMIDE
  6. RITUXIMAB (MOAB C2B8 ANTI CD20, CHIMERIC) [Concomitant]
     Active Substance: RITUXIMAB
  7. ONCASPAR [Concomitant]
     Active Substance: PEGASPARGASE

REACTIONS (8)
  - Ascites [None]
  - Chills [None]
  - Pneumonia [None]
  - Ovarian cyst [None]
  - Abdominal discomfort [None]
  - Pyrexia [None]
  - Generalised oedema [None]
  - Neutropenia [None]

NARRATIVE: CASE EVENT DATE: 20200222
